FAERS Safety Report 17973257 (Version 1)
Quarter: 2020Q3

REPORT INFORMATION
  Report Type: Spontaneous
  Country: US (occurrence: US)
  Receive Date: 20200701
  Receipt Date: 20200701
  Transmission Date: 20201103
  Serious: Yes (Other)
  Sender: FDA-Public Use
  Company Number: None

PATIENT
  Age: 80 Year
  Sex: Female

DRUGS (2)
  1. LOSARTAN 100MG TAB [Concomitant]
     Active Substance: LOSARTAN
  2. DILTIAZEM ER 240MG/24HR CAP(AB3). [Suspect]
     Active Substance: DILTIAZEM HYDROCHLORIDE
     Route: 048
     Dates: start: 20190619

REACTIONS (3)
  - Accidental overdose [None]
  - Hypotension [None]
  - Vertigo [None]

NARRATIVE: CASE EVENT DATE: 20200701
